FAERS Safety Report 5698652-1 (Version None)
Quarter: 2008Q2

REPORT INFORMATION
  Report Type: 
  Country: None (occurrence: None)
  Receive Date: 20080408
  Receipt Date: 20070105
  Transmission Date: 20081010
  Serious: No
  Sender: FDA-Public Use
  Company Number: US-BAYER-US-2007-000706

PATIENT
  Age: 48 Year
  Sex: Female
  Weight: 91 kg

DRUGS (4)
  1. CLIMARA [Suspect]
     Route: 062
  2. RHINOCORT [Concomitant]
  3. ASMANEX TWISTHALER [Concomitant]
  4. SYNTHROID [Concomitant]

REACTIONS (2)
  - APPLICATION SITE REACTION [None]
  - PHARMACEUTICAL PRODUCT COMPLAINT [None]
